FAERS Safety Report 8337102-3 (Version None)
Quarter: 2012Q2

REPORT INFORMATION
  Report Type: 
  Country: None (occurrence: None)
  Receive Date: 20120501
  Receipt Date: 20120416
  Transmission Date: 20120825
  Serious: Yes (Hospitalization)
  Sender: FDA-Public Use
  Company Number: FK201201114

PATIENT
  Age: 77 Year
  Sex: Female

DRUGS (1)
  1. CLONIDINE HYDROCHLORIDE [Suspect]
     Indication: BACK PAIN
     Dosage: 250UG/DAY

REACTIONS (10)
  - HYPERHIDROSIS [None]
  - ACUTE PULMONARY OEDEMA [None]
  - DYSARTHRIA [None]
  - NEEDLE ISSUE [None]
  - HYPERTENSIVE CRISIS [None]
  - PROCEDURAL COMPLICATION [None]
  - LEFT VENTRICULAR FAILURE [None]
  - OVERDOSE [None]
  - HYPOTENSION [None]
  - CONFUSIONAL STATE [None]
